FAERS Safety Report 9536656 (Version 1)
Quarter: 2013Q3

REPORT INFORMATION
  Report Type: Spontaneous
  Country: US (occurrence: None)
  Receive Date: 20130918
  Receipt Date: 20130918
  Transmission Date: 20140515
  Serious: No
  Sender: FDA-Public Use
  Company Number: None

PATIENT
  Sex: Female
  Weight: 77.11 kg

DRUGS (1)
  1. EFFEXOR XR [Suspect]
     Indication: HOT FLUSH
     Route: 048
     Dates: start: 201212

REACTIONS (20)
  - Fatigue [None]
  - Dysgeusia [None]
  - Sudden onset of sleep [None]
  - Contusion [None]
  - Feeling abnormal [None]
  - Weight increased [None]
  - Constipation [None]
  - Thirst [None]
  - Gastrooesophageal reflux disease [None]
  - Paraesthesia oral [None]
  - Hypoaesthesia [None]
  - Paraesthesia [None]
  - Swelling face [None]
  - Local swelling [None]
  - Arthralgia [None]
  - Palpitations [None]
  - Dry eye [None]
  - Ocular hyperaemia [None]
  - Vitreous floaters [None]
  - Alopecia [None]
